FAERS Safety Report 5522369-7 (Version None)
Quarter: 2007Q4

REPORT INFORMATION
  Report Type: 
  Country: None (occurrence: None)
  Receive Date: 20071120
  Receipt Date: 20071112
  Transmission Date: 20080405
  Serious: Yes (Other)
  Sender: FDA-Public Use
  Company Number: DE-PFIZER INC-2007082047

PATIENT
  Sex: Male
  Weight: 82 kg

DRUGS (3)
  1. LYRICA [Suspect]
     Indication: POLYNEUROPATHY
     Route: 048
     Dates: start: 20040401, end: 20070401
  2. ANTIEPILEPTICS [Concomitant]
  3. CYMBALTA [Concomitant]

REACTIONS (3)
  - GYNAECOMASTIA [None]
  - SPINAL DISORDER [None]
  - WEIGHT INCREASED [None]
